FAERS Safety Report 11809689 (Version 2)
Quarter: 2015Q4

REPORT INFORMATION
  Report Type: Spontaneous
  Country: NL (occurrence: NL)
  Receive Date: 20151208
  Receipt Date: 20151218
  Transmission Date: 20160305
  Serious: Yes (Death, Other)
  Sender: FDA-Public Use
  Company Number: NL-UCBSA-2015039256

PATIENT
  Age: 75 Year
  Sex: Female

DRUGS (3)
  1. CIMZIA [Suspect]
     Active Substance: CERTOLIZUMAB PEGOL
     Indication: RHEUMATOID ARTHRITIS
     Dosage: 200 MG, EV 2 WEEKS(QOW)
     Route: 058
     Dates: start: 20150126, end: 20150323
  2. SULFASALAZINE. [Concomitant]
     Active Substance: SULFASALAZINE
     Indication: RHEUMATOID ARTHRITIS
     Dosage: 1500 MG, 2X/DAY (BID)
     Route: 048
     Dates: start: 201402, end: 201505
  3. MTX [Concomitant]
     Active Substance: METHOTREXATE SODIUM
     Indication: RHEUMATOID ARTHRITIS
     Dosage: 20 MG, WEEKLY (QW)
     Route: 048
     Dates: start: 2013, end: 201505

REACTIONS (10)
  - Fall [Unknown]
  - Muscle haemorrhage [Unknown]
  - Cognitive disorder [Unknown]
  - Serum ferritin increased [Unknown]
  - Histiocytosis haematophagic [Unknown]
  - Tuberculosis [Fatal]
  - Cardiac failure [Unknown]
  - Sepsis [Unknown]
  - Pyrexia [Unknown]
  - Pulmonary embolism [Fatal]

NARRATIVE: CASE EVENT DATE: 2015
